FAERS Safety Report 8523421 (Version 2)
Quarter: 2012Q4

REPORT INFORMATION
  Report Type: 
  Country: ES (occurrence: ES)
  Receive Date: 20120420
  Receipt Date: 20121129
  Transmission Date: 20130627
  Serious: Yes (Hospitalization, Congenital Anomaly, Other)
  Sender: FDA-Public Use
  Company Number: ES-AMGEN-ESPSP2011063729

PATIENT
  Age: -1 Year
  Sex: Male

DRUGS (26)
  1. MIMPARA [Suspect]
     Dosage: 30 mg, qd
     Route: 064
     Dates: start: 20100329, end: 20101105
  2. MIMPARA [Suspect]
     Dosage: 15 mg, qd
     Route: 064
     Dates: start: 20101105, end: 20101123
  3. FOLIC ACID W/VITAMIN B COMPLEX [Concomitant]
     Dosage: 5 mg, qd
     Route: 064
     Dates: start: 20100329, end: 20101105
  4. IODINE [Concomitant]
     Dosage: 200 mg, qd
     Route: 064
     Dates: start: 20101117, end: 20110627
  5. ERYTHROPOIETIN [Concomitant]
     Dosage: 18000 IU, qwk
     Route: 064
  6. ERYTHROPOIETIN [Concomitant]
     Dosage: 30000 IU, qwk
     Route: 064
  7. ERYTHROPOIETIN [Concomitant]
     Dosage: 42000 IU, qwk
  8. LOSARTAN [Concomitant]
     Dosage: UNK
  9. ATORVASTATIN [Concomitant]
     Dosage: UNK
     Route: 064
  10. DOXAZOSIN [Concomitant]
     Route: 064
  11. ATENOLOL [Concomitant]
     Dosage: UNK
  12. ENOXAPARIN [Concomitant]
     Dosage: 20 mg, UNK
     Route: 064
  13. ALMAGATE [Concomitant]
     Route: 064
  14. OMEPRAZOLE [Concomitant]
     Dosage: UNK
     Route: 064
  15. CALCIUM ACETATE [Concomitant]
     Dosage: UNK
     Route: 064
  16. VITAMIN C                          /00008001/ [Concomitant]
     Dosage: UNK
     Route: 064
  17. CARNITINE                          /00878602/ [Concomitant]
     Dosage: UNK UNK, 3 times/wk
     Route: 064
  18. DIAZEPAM [Concomitant]
     Dosage: UNK
     Route: 064
  19. HEPARIN SODIUM [Concomitant]
     Dosage: 15 mg, qh
     Route: 064
  20. HEPARIN SODIUM [Concomitant]
     Dosage: 5 mg, qh
     Route: 064
  21. METHYLDOPA [Concomitant]
     Dosage: 2 g, qd
     Route: 064
  22. LABETALOL [Concomitant]
     Dosage: 1200 mg, qd
     Route: 064
  23. LABETALOL [Concomitant]
     Dosage: 1 g, qd
     Route: 064
  24. HYDRALAZINE [Concomitant]
     Dosage: 100 mg, qd
     Route: 064
  25. SODIUM PHOSPHATE [Concomitant]
     Dosage: 30 mEq, UNK
     Route: 064
  26. MAGNESIUM SULPHATE                 /01097001/ [Concomitant]
     Dosage: 12 mEq, UNK
     Route: 064

REACTIONS (4)
  - Inguinal hernia [Unknown]
  - Foetal growth restriction [Unknown]
  - Premature delivery [Recovered/Resolved]
  - Foetal exposure during pregnancy [Recovered/Resolved]
